FAERS Safety Report 7885586 (Version 22)
Quarter: 2014Q1

REPORT INFORMATION
  Report Type: Report from Study
  Country: CA (occurrence: CA)
  Receive Date: 20110405
  Receipt Date: 20140106
  Transmission Date: 20141002
  Serious: Yes (Death, Life-Threatening, Hospitalization, Other)
  Sender: FDA-Public Use
  Company Number: PHHY2011CA24210

PATIENT
  Age: 70 Year
  Sex: Male

DRUGS (6)
  1. SANDOSTATIN LAR [Suspect]
     Indication: MEDULLARY THYROID CANCER
     Dosage: 30 MG, EVERY 4 WEEKS
     Route: 030
     Dates: start: 20110224
  2. SANDOSTATIN LAR [Suspect]
     Dosage: 30 MG EVERY, 4 WEEKS
     Route: 030
     Dates: start: 20110906
  3. SANDOSTATIN LAR [Suspect]
     Dosage: 30 MG, EVERY FOUR WEEKS
     Route: 030
     Dates: end: 20131029
  4. DILTIAZEM [Concomitant]
     Dosage: UNK UKN, UNK
  5. DIAMICRON [Concomitant]
     Dosage: UNK UKN, UNK
  6. SCOPOLAMINE [Concomitant]
     Indication: APPETITE DISORDER
     Dosage: 1.5 PATCHES

REACTIONS (40)
  - Death [Fatal]
  - Terminal state [Unknown]
  - Atrial fibrillation [Unknown]
  - Blood pressure decreased [Unknown]
  - Lung disorder [Unknown]
  - Carcinoid syndrome [Unknown]
  - Malignant neoplasm progression [Unknown]
  - Metastases to spine [Unknown]
  - Hyperglycaemia [Unknown]
  - Hypoglycaemia [Unknown]
  - Weight decreased [Recovering/Resolving]
  - Dysstasia [Recovering/Resolving]
  - Malnutrition [Unknown]
  - Decreased appetite [Recovering/Resolving]
  - Depressed mood [Not Recovered/Not Resolved]
  - Anger [Unknown]
  - Feeling abnormal [Unknown]
  - Face oedema [Unknown]
  - Blood pressure systolic increased [Unknown]
  - Malaise [Recovering/Resolving]
  - Sciatica [Unknown]
  - Vertigo [Not Recovered/Not Resolved]
  - Cerumen impaction [Unknown]
  - Muscular weakness [Unknown]
  - Limb discomfort [Unknown]
  - Hypophagia [Unknown]
  - Impaired driving ability [Unknown]
  - Procedural pain [Unknown]
  - Loss of control of legs [Unknown]
  - Aphagia [Unknown]
  - Somnolence [Unknown]
  - Hallucination [Unknown]
  - Asthenia [Recovering/Resolving]
  - Dizziness [Unknown]
  - Vomiting [Unknown]
  - Injection site pain [Recovering/Resolving]
  - Heart rate irregular [Unknown]
  - Heart rate increased [Unknown]
  - Nausea [Unknown]
  - Fatigue [Unknown]
